FAERS Safety Report 16638533 (Version 1)
Quarter: 2019Q3

REPORT INFORMATION
  Report Type: Spontaneous
  Country: US (occurrence: US)
  Receive Date: 20190726
  Receipt Date: 20190726
  Transmission Date: 20191004
  Serious: Yes (Death)
  Sender: FDA-Public Use
  Company Number: US-JNJFOC-20190724250

PATIENT
  Sex: Male
  Weight: 61.29 kg

DRUGS (14)
  1. XTANDI [Concomitant]
     Active Substance: ENZALUTAMIDE
  2. ROPINIROLE. [Concomitant]
     Active Substance: ROPINIROLE
  3. LUPRON [Concomitant]
     Active Substance: LEUPROLIDE ACETATE
     Route: 065
  4. VITAMIN D3 [Concomitant]
     Active Substance: CHOLECALCIFEROL
  5. AZOPT [Concomitant]
     Active Substance: BRINZOLAMIDE
  6. ABIRATERONE ACETATE. [Suspect]
     Active Substance: ABIRATERONE ACETATE
     Indication: PROSTATE CANCER
     Route: 048
  7. FLUTICASONE. [Concomitant]
     Active Substance: FLUTICASONE
     Route: 065
  8. TRAMADOL. [Concomitant]
     Active Substance: TRAMADOL
     Route: 065
  9. VITAMIN B12 [Concomitant]
     Active Substance: CYANOCOBALAMIN
     Route: 065
  10. XGEVA [Concomitant]
     Active Substance: DENOSUMAB
  11. PHENOBARBITAL. [Concomitant]
     Active Substance: PHENOBARBITAL
  12. KEPPRA [Concomitant]
     Active Substance: LEVETIRACETAM
     Route: 065
  13. GABAPENTIN. [Concomitant]
     Active Substance: GABAPENTIN
     Route: 065
  14. SYMBICORT [Concomitant]
     Active Substance: BUDESONIDE\FORMOTEROL FUMARATE DIHYDRATE
     Route: 065

REACTIONS (3)
  - Myalgia [Unknown]
  - Bone pain [Unknown]
  - Death [Fatal]

NARRATIVE: CASE EVENT DATE: 2019
